APPROVED DRUG PRODUCT: VESPRIN
Active Ingredient: TRIFLUPROMAZINE
Strength: EQ 50MG HYDROCHLORIDE/5ML
Dosage Form/Route: SUSPENSION;ORAL
Application: N011491 | Product #004
Applicant: APOTHECON SUB BRISTOL MYERS SQUIBB CO
Approved: Approved Prior to Jan 1, 1982 | RLD: No | RS: No | Type: DISCN